FAERS Safety Report 5216695-9 (Version None)
Quarter: 2006Q4

REPORT INFORMATION
  Report Type: 
  Country: None (occurrence: None)
  Receive Date: 20061130
  Receipt Date: 20060922
  Transmission Date: 20070319
  Serious: Yes (Other)
  Sender: FDA-Public Use
  Company Number: US200603005157

PATIENT
  Age: 42 Year
  Sex: Male

DRUGS (20)
  1. ZYPREXA [Suspect]
     Dosage: SEE IMAGE
     Route: 048
     Dates: start: 19980114, end: 19980305
  2. ZYPREXA [Suspect]
     Dosage: SEE IMAGE
     Route: 048
     Dates: start: 19980305, end: 19980409
  3. ZYPREXA [Suspect]
     Dosage: SEE IMAGE
     Route: 048
     Dates: start: 19980409, end: 19981102
  4. ZYPREXA [Suspect]
     Dosage: SEE IMAGE
     Route: 048
     Dates: start: 19980409, end: 19990302
  5. ZYPREXA [Suspect]
     Dosage: SEE IMAGE
     Route: 048
     Dates: start: 19990303, end: 19991015
  6. ZYPREXA [Suspect]
     Dosage: SEE IMAGE
     Route: 048
     Dates: start: 19990113, end: 20011005
  7. ZYPREXA [Suspect]
     Dosage: SEE IMAGE
     Route: 048
     Dates: start: 19991015, end: 20011005
  8. ZYPREXA [Suspect]
     Dosage: SEE IMAGE
     Route: 048
     Dates: start: 20011005, end: 20020102
  9. ZYPREXA [Suspect]
     Dosage: SEE IMAGE
     Route: 048
     Dates: start: 20020102, end: 20020110
  10. ZYPREXA [Suspect]
     Dosage: SEE IMAGE
     Route: 048
     Dates: start: 20020111, end: 20020116
  11. ZYPREXA [Suspect]
     Dosage: SEE IMAGE
     Route: 048
     Dates: start: 20020117, end: 20020123
  12. ZYPREXA [Suspect]
     Dosage: SEE IMAGE
     Route: 048
     Dates: start: 20020124, end: 20020130
  13. VISTARIL [Concomitant]
  14. TRAZODONE HCL [Concomitant]
  15. MYLANTA (ALUMINIUM HYDROXIDE GEL, DRIED, MAGNESIUM HYDROXIDE, SIMETICO [Concomitant]
  16. COLACE (DOCUSATE SODIUM) [Concomitant]
  17. FELDENE [Concomitant]
  18. COGENTIN /UNK/ (BENZATROPINE MESILATE) [Concomitant]
  19. DOXEPIN HCL [Concomitant]
  20. RISPERDAL /SWE/ (RISPERIDONE) [Concomitant]

REACTIONS (2)
  - DIABETES MELLITUS [None]
  - PRESCRIBED OVERDOSE [None]
